FAERS Safety Report 7363087-2 (Version None)
Quarter: 2011Q1

REPORT INFORMATION
  Report Type: 
  Country: None (occurrence: None)
  Receive Date: 20110321
  Receipt Date: 20110311
  Transmission Date: 20110831
  Serious: Yes (Other)
  Sender: FDA-Public Use
  Company Number: US-PFIZER INC-2006031837

PATIENT
  Sex: Female

DRUGS (16)
  1. NEURONTIN [Suspect]
     Indication: MUSCULOSKELETAL PAIN
  2. RHINOCORT [Concomitant]
     Dosage: UNK
  3. LEXAPRO [Concomitant]
     Dosage: UNK
  4. NEURONTIN [Suspect]
     Indication: NECK PAIN
     Dosage: 300 MG, 3X/DAY
  5. ESTRADIOL [Concomitant]
     Dosage: UNK
  6. BACLOFEN [Concomitant]
     Dosage: UNK
  7. PROTONIX [Concomitant]
     Dosage: UNK
  8. PARECOXIB SODIUM [Concomitant]
     Dosage: UNK
  9. ESTRATEST [Concomitant]
     Dosage: UNK
  10. MONTELUKAST SODIUM [Concomitant]
     Dosage: UNK
  11. TYLENOL W/ CODEINE NO. 3 [Concomitant]
     Dosage: UNK
  12. DARVOCET [Concomitant]
     Dosage: UNK
  13. CARBIDOPA + LEVODOPA [Concomitant]
     Dosage: UNK
  14. TRAZODONE [Concomitant]
     Dosage: UNK
  15. HYDROCODONE BITARTRATE [Concomitant]
     Dosage: UNK
  16. ALL OTHER THERAPEUTIC PRODUCTS [Concomitant]
     Dosage: UNK

REACTIONS (1)
  - SUICIDAL IDEATION [None]
